FAERS Safety Report 21477515 (Version 1)
Quarter: 2022Q4

REPORT INFORMATION
  Report Type: Spontaneous
  Country: CN (occurrence: CN)
  Receive Date: 20221019
  Receipt Date: 20221019
  Transmission Date: 20230112
  Serious: Yes (Other)
  Sender: FDA-Public Use
  Company Number: None

PATIENT
  Age: 61 Year
  Sex: Male

DRUGS (4)
  1. VORICONAZOLE [Suspect]
     Active Substance: VORICONAZOLE
     Indication: Pneumonia fungal
     Dosage: 400 MG, Q12H
     Route: 048
     Dates: start: 20220924
  2. VORICONAZOLE [Suspect]
     Active Substance: VORICONAZOLE
     Dosage: 200 MG, Q12H (2 TIMES A DAY,24 HOURS LATER)
     Route: 048
     Dates: start: 20220925, end: 20220929
  3. ESTAZOLAM [Concomitant]
     Active Substance: ESTAZOLAM
     Indication: Sedation
     Route: 048
  4. ESTAZOLAM [Concomitant]
     Active Substance: ESTAZOLAM
     Indication: Hypnotherapy

REACTIONS (1)
  - Disorganised speech [Unknown]

NARRATIVE: CASE EVENT DATE: 20220929
